FAERS Safety Report 10083286 (Version 1)
Quarter: 2014Q2

REPORT INFORMATION
  Report Type: Spontaneous
  Country: US (occurrence: None)
  Receive Date: 20140416
  Receipt Date: 20140416
  Transmission Date: 20141212
  Serious: Yes (Life-Threatening)
  Sender: FDA-Public Use
  Company Number: None

PATIENT
  Age: 53 Year
  Sex: Male

DRUGS (5)
  1. TASIGNA 150MG NOVARTIS [Suspect]
     Indication: CHRONIC LYMPHOCYTIC LEUKAEMIA
     Dosage: 2 PO BID.
     Route: 048
     Dates: start: 20140228, end: 201403
  2. TASIGNA 150MG NOVARTIS [Suspect]
     Indication: ACUTE LEUKAEMIA
     Dosage: 2 PO BID.
     Route: 048
     Dates: start: 20140228, end: 201403
  3. CIPROFLOXACIN [Concomitant]
  4. VIT. D, FOLIC ACID, VIT. B - COMPLEX [Concomitant]
  5. BENADRYL TABS + CREAM [Concomitant]

REACTIONS (1)
  - Heart rate irregular [None]
